FAERS Safety Report 10636634 (Version 1)
Quarter: 2014Q4

REPORT INFORMATION
  Report Type: Spontaneous
  Country: US (occurrence: None)
  Receive Date: 20141203
  Receipt Date: 20141203
  Transmission Date: 20150529
  Serious: No
  Sender: FDA-Public Use
  Company Number: None

PATIENT
  Age: 78 Year
  Sex: Male
  Weight: 70.31 kg

DRUGS (1)
  1. JUBLIA [Suspect]
     Active Substance: EFINACONAZOLE
     Dosage: 2 DROPS DAILY TOPICAL
     Route: 061
     Dates: start: 20141017, end: 20141110

REACTIONS (3)
  - Overdose [None]
  - Incorrect drug administration duration [None]
  - Device malfunction [None]
